FAERS Safety Report 12208595 (Version 1)
Quarter: 2016Q1

REPORT INFORMATION
  Report Type: Other
  Country: GB (occurrence: GB)
  Receive Date: 20160324
  Receipt Date: 20160324
  Transmission Date: 20160526
  Serious: Yes (Hospitalization)
  Sender: FDA-Public Use
  Company Number: GB-MYLANLABS-2016M1012072

PATIENT

DRUGS (2)
  1. AZATHIOPRINE. [Suspect]
     Active Substance: AZATHIOPRINE
     Indication: ECZEMA
     Dosage: 75 MG, BID
     Route: 048
     Dates: start: 20131231, end: 20160223
  2. DERMOL                             /01330701/ [Concomitant]
     Dosage: UNK

REACTIONS (8)
  - Lethargy [Unknown]
  - Neutropenic sepsis [Unknown]
  - Vomiting [Unknown]
  - Pyrexia [Unknown]
  - Decreased appetite [Unknown]
  - Abdominal pain [Unknown]
  - Purpura [Unknown]
  - Immunosuppression [Not Recovered/Not Resolved]

NARRATIVE: CASE EVENT DATE: 20160209
